FAERS Safety Report 13620720 (Version 6)
Quarter: 2017Q2

REPORT INFORMATION
  Report Type: Spontaneous
  Country: IT (occurrence: IT)
  Receive Date: 20170607
  Receipt Date: 20170629
  Transmission Date: 20170830
  Serious: Yes (Death, Other)
  Sender: FDA-Public Use
  Company Number: IT-ROCHE-1944727

PATIENT
  Age: 74 Year
  Sex: Male

DRUGS (4)
  1. ZELBORAF [Suspect]
     Active Substance: VEMURAFENIB
     Indication: MALIGNANT MELANOMA
     Dosage: 240 MG- BLISTER (AL/AL) 56 TABLETS
     Route: 048
     Dates: start: 20170505
  2. COTELLIC [Suspect]
     Active Substance: COBIMETINIB
     Indication: MALIGNANT MELANOMA
     Dosage: 20 MG, PVDC BLISTER PACK - 63 (3X21) TABLETS
     Route: 048
     Dates: start: 20170505
  3. NIFEDIPIN [Concomitant]
     Active Substance: NIFEDIPINE
     Route: 065
  4. LANOXIN [Concomitant]
     Active Substance: DIGOXIN
     Route: 065

REACTIONS (5)
  - Face oedema [Fatal]
  - Urticaria [Fatal]
  - Pain [Fatal]
  - Erythema [Fatal]
  - Rash [Recovering/Resolving]

NARRATIVE: CASE EVENT DATE: 20170527
